FAERS Safety Report 6302318-4 (Version None)
Quarter: 2009Q3

REPORT INFORMATION
  Report Type: 
  Country: None (occurrence: None)
  Receive Date: 20090810
  Receipt Date: 20090806
  Transmission Date: 20100115
  Serious: Yes (Other)
  Sender: FDA-Public Use
  Company Number: US-WYE-H10014509

PATIENT
  Sex: Female
  Weight: 63.56 kg

DRUGS (5)
  1. PRISTIQ [Suspect]
     Indication: DEPRESSION
     Route: 048
     Dates: start: 20090301, end: 20090101
  2. WELLBUTRIN [Concomitant]
     Indication: DEPRESSION
     Dosage: UNKNOWN
     Route: 048
  3. LEXAPRO [Concomitant]
     Indication: DEPRESSION
     Dosage: UNKNOWN
     Route: 048
  4. ULTRAM [Concomitant]
     Indication: PAIN
     Dosage: UNKNOWN
     Route: 048
  5. ZANAFLEX [Concomitant]
     Indication: MUSCLE RELAXANT THERAPY
     Dosage: UNKNOWN
     Route: 048

REACTIONS (1)
  - SUICIDAL IDEATION [None]
